FAERS Safety Report 18169368 (Version 1)
Quarter: 2020Q3

REPORT INFORMATION
  Report Type: Spontaneous
  Country: AU (occurrence: AU)
  Receive Date: 20200818
  Receipt Date: 20200818
  Transmission Date: 20201103
  Serious: Yes (Hospitalization, Other)
  Sender: FDA-Public Use
  Company Number: AU-CANTON LABORATORIES, LLC-2088768

PATIENT
  Sex: Female

DRUGS (15)
  1. SIMPONI [Concomitant]
     Active Substance: GOLIMUMAB
     Route: 065
  2. COSENTYX [Suspect]
     Active Substance: SECUKINUMAB
     Route: 065
  3. VOLTAREN [Concomitant]
     Active Substance: DICLOFENAC SODIUM
     Route: 065
  4. NAPROSYN [Suspect]
     Active Substance: NAPROXEN
     Indication: PRODUCT USED FOR UNKNOWN INDICATION
     Route: 065
  5. UNSPECIFIED CORTICOSTEROID [Concomitant]
     Active Substance: CORTICOSTEROID NOS
     Route: 065
  6. HUMIRA [Concomitant]
     Active Substance: ADALIMUMAB
     Route: 065
  7. ENBREL [Suspect]
     Active Substance: ETANERCEPT
     Route: 065
  8. LEFLUNOMIDE. [Suspect]
     Active Substance: LEFLUNOMIDE
     Route: 065
  9. METHOTREXATE. [Suspect]
     Active Substance: METHOTREXATE
     Route: 065
  10. BRENZYS [Concomitant]
     Active Substance: ETANERCEPT
     Route: 065
  11. NALOXONE HYDROCHLORIDE. [Concomitant]
     Active Substance: NALOXONE HYDROCHLORIDE
     Route: 065
  12. CORTISONE [Concomitant]
     Active Substance: CORTISONE
     Route: 065
  13. NUROFEN PLUS [Concomitant]
     Active Substance: CODEINE PHOSPHATE\IBUPROFEN
     Route: 065
  14. CELEBREX [Suspect]
     Active Substance: CELECOXIB
     Route: 065
  15. PREDNISONE. [Suspect]
     Active Substance: PREDNISONE
     Route: 048

REACTIONS (46)
  - Back pain [Unknown]
  - Gait disturbance [Unknown]
  - Ocular hyperaemia [Unknown]
  - Spondylitis [Unknown]
  - Stress [Unknown]
  - Uveitis [Unknown]
  - Ankylosing spondylitis [Unknown]
  - Insomnia [Unknown]
  - Joint swelling [Unknown]
  - Musculoskeletal stiffness [Unknown]
  - Pain [Unknown]
  - Sleep disorder [Unknown]
  - Suicidal ideation [Unknown]
  - Anaphylactic reaction [Unknown]
  - Diarrhoea [Unknown]
  - Peripheral swelling [Unknown]
  - Affective disorder [Unknown]
  - Fibromyalgia [Unknown]
  - Hypersensitivity [Unknown]
  - Hypokinesia [Unknown]
  - Constipation [Unknown]
  - Musculoskeletal pain [Unknown]
  - Pain in extremity [Unknown]
  - Respiratory disorder [Unknown]
  - Anger [Unknown]
  - Behcet^s syndrome [Unknown]
  - C-reactive protein increased [Unknown]
  - Enthesopathy [Unknown]
  - Fatigue [Unknown]
  - Groin pain [Unknown]
  - Pulmonary embolism [Unknown]
  - Arthralgia [Unknown]
  - Coccydynia [Unknown]
  - Depressed mood [Unknown]
  - Dyspnoea [Unknown]
  - Feeling hot [Unknown]
  - Nausea [Unknown]
  - Platelet count decreased [Unknown]
  - Crohn^s disease [Unknown]
  - Fear [Unknown]
  - Gastric ulcer [Unknown]
  - Memory impairment [Unknown]
  - Mydriasis [Unknown]
  - Pericarditis [Unknown]
  - Swelling [Unknown]
  - Feeling abnormal [Unknown]
